FAERS Safety Report 5146202-0 (Version None)
Quarter: 2006Q4

REPORT INFORMATION
  Report Type: 
  Country: None (occurrence: None)
  Receive Date: 20061106
  Receipt Date: 20061106
  Transmission Date: 20070319
  Serious: Yes (Other)
  Sender: FDA-Public Use
  Company Number: None

PATIENT
  Age: 47 Year
  Sex: Female
  Weight: 65.7716 kg

DRUGS (1)
  1. CIPROFLOXACIN HCL 500MG TAB  DR. REDDY'S LAB [Suspect]
     Indication: URINARY TRACT INFECTION
     Dosage: 500MG 1 TAB 2X DAY PO
     Route: 048
     Dates: start: 20061103, end: 20061104

REACTIONS (8)
  - ANXIETY [None]
  - ASTHENIA [None]
  - CEREBROVASCULAR ACCIDENT [None]
  - DIZZINESS [None]
  - DYSPNOEA [None]
  - FEELING ABNORMAL [None]
  - SYNCOPE [None]
  - TREMOR [None]
